FAERS Safety Report 9926270 (Version 1)
Quarter: 2014Q1

REPORT INFORMATION
  Report Type: Spontaneous
  Country: US (occurrence: US)
  Receive Date: 20140226
  Receipt Date: 20140226
  Transmission Date: 20141002
  Serious: No
  Sender: FDA-Public Use
  Company Number: US-AMGEN-USASP2013081697

PATIENT
  Age: 48 Year
  Sex: Female
  Weight: 74.83 kg

DRUGS (14)
  1. ENBREL [Suspect]
     Indication: RHEUMATOID ARTHRITIS
     Dosage: UNK
     Route: 065
  2. HUMIRA [Suspect]
     Indication: RHEUMATOID ARTHRITIS
     Dosage: 40 MG, Q2WK
     Route: 058
     Dates: start: 201302, end: 201307
  3. METHOTREXATE [Concomitant]
     Indication: RHEUMATOID ARTHRITIS
     Dosage: UNK
  4. FELDENE [Concomitant]
     Indication: RHEUMATOID ARTHRITIS
     Dosage: UNK
  5. FOLIC ACID [Concomitant]
     Indication: RHEUMATOID ARTHRITIS
     Dosage: UNK
  6. FISH OIL [Concomitant]
     Indication: VITAMIN SUPPLEMENTATION
     Dosage: UNK
  7. CYAMOPSIS TETRAGONOLOBA GUM [Concomitant]
     Indication: VITAMIN SUPPLEMENTATION
     Dosage: UNK
  8. ZESTORETIC [Concomitant]
     Indication: HYPERTENSION
     Dosage: UNK
  9. PREVACID [Concomitant]
     Indication: GASTROOESOPHAGEAL REFLUX DISEASE
     Dosage: UNK
  10. XANAX [Concomitant]
     Indication: ANXIETY
     Dosage: UNK
  11. ULTRAM                             /00599202/ [Concomitant]
     Indication: RHEUMATOID ARTHRITIS
     Dosage: UNK
  12. TYLENOL                            /00020001/ [Concomitant]
     Indication: RHEUMATOID ARTHRITIS
     Dosage: UNK
  13. NEURONTIN [Concomitant]
     Indication: NEUROPATHY PERIPHERAL
     Dosage: UNK
  14. PREDNISONE [Concomitant]
     Indication: RHEUMATOID ARTHRITIS
     Dosage: UNK UNK, AS NECESSARY

REACTIONS (10)
  - Drug hypersensitivity [Unknown]
  - Menorrhagia [Unknown]
  - Rash [Unknown]
  - Petechiae [Unknown]
  - Pyrexia [Unknown]
  - Urticaria [Unknown]
  - Injection site warmth [Recovered/Resolved]
  - Injection site reaction [Recovered/Resolved]
  - Injection site swelling [Recovered/Resolved]
  - Injection site erythema [Recovered/Resolved]
